FAERS Safety Report 20642218 (Version 1)
Quarter: 2022Q1

REPORT INFORMATION
  Report Type: Spontaneous
  Country: US (occurrence: US)
  Receive Date: 20220328
  Receipt Date: 20220328
  Transmission Date: 20220423
  Serious: No
  Sender: FDA-Public Use
  Company Number: US-GW PHARMA-202203USGW01445

PATIENT
  Sex: Male

DRUGS (1)
  1. EPIDIOLEX [Suspect]
     Active Substance: CANNABIDIOL
     Indication: Lennox-Gastaut syndrome
     Dosage: 290 MILLIGRAM, BID, MEDICATION HAS BEEN INCREASED TO 3.4 ML TWICE A DAY, BUT IT WAS NOT YET SHIPPED
     Dates: start: 201901

REACTIONS (1)
  - Weight increased [Unknown]
